FAERS Safety Report 5851257-1 (Version None)
Quarter: 2008Q3

REPORT INFORMATION
  Report Type: 
  Country: None (occurrence: None)
  Receive Date: 20080820
  Receipt Date: 20080811
  Transmission Date: 20090109
  Serious: Yes (Hospitalization)
  Sender: FDA-Public Use
  Company Number: DE-JNJFOC-20080802066

PATIENT
  Age: 64 Year
  Sex: Female

DRUGS (2)
  1. TAVANIC [Suspect]
     Indication: GASTROINTESTINAL DISORDER
     Route: 048
  2. BELOC ZOK [Concomitant]
     Indication: ESSENTIAL HYPERTENSION
     Route: 048

REACTIONS (2)
  - DISORIENTATION [None]
  - GLOBAL AMNESIA [None]
